FAERS Safety Report 19652569 (Version 1)
Quarter: 2021Q3

REPORT INFORMATION
  Report Type: Spontaneous
  Country: TR (occurrence: TR)
  Receive Date: 20210803
  Receipt Date: 20210803
  Transmission Date: 20211014
  Serious: Yes (Hospitalization, Other)
  Sender: FDA-Public Use
  Company Number: TR-LOTUS-2021-LOTUS-000809

PATIENT
  Age: 19 Year
  Sex: Female

DRUGS (2)
  1. METHOTREXATE. [Suspect]
     Active Substance: METHOTREXATE
     Indication: OSTEOSARCOMA METASTATIC
     Dosage: 8 GR/M2, TWO?WEEKLY, 3 CYCLES
  2. FAVIPIRAVIR [Interacting]
     Active Substance: FAVIPIRAVIR
     Indication: COVID-19 PROPHYLAXIS
     Dosage: LOADING DOSE OF 2X1600MG ON THE 1ST DAY OF TREATMENT.

REACTIONS (2)
  - Drug-induced liver injury [Recovered/Resolved]
  - Drug interaction [Recovered/Resolved]
